FAERS Safety Report 8942015 (Version 2)
Quarter: 2013Q1

REPORT INFORMATION
  Report Type: Spontaneous
  Country: US (occurrence: US)
  Receive Date: 20121203
  Receipt Date: 20130129
  Transmission Date: 20140127
  Serious: Yes (Death, Other)
  Sender: FDA-Public Use
  Company Number: US-INCYTE CORPORATION-2012IN002460

PATIENT
  Sex: Male

DRUGS (13)
  1. JAKAFI [Suspect]
     Indication: MYELOFIBROSIS
     Dosage: 10 MG, BID
     Route: 048
     Dates: start: 20120828, end: 20121109
  2. AMIODARONE [Concomitant]
     Dosage: 400 MG, AS DIRECTED
  3. AMLODIPINE [Concomitant]
     Dosage: 10 MG, AS DIRECTED
  4. AVODART [Concomitant]
     Dosage: 0.5 MG, AS DIRECTED
  5. BACTRIM DS [Concomitant]
     Dosage: 800MG-160MG, BID
     Route: 048
  6. CYMBALTA [Concomitant]
     Dosage: 30 MG, AS DIRECTED
  7. DIOVAN [Concomitant]
     Dosage: 320 MG, AS DIRECTED
  8. FUROSEMIDE [Concomitant]
     Dosage: 40 MG, AS DIRECTED
  9. ISOSORBIDE MONONITRATE [Concomitant]
     Dosage: 60 MG, AS DIRECTED
  10. KLOR-CON [Concomitant]
     Dosage: 20 MEQ, AS DIRECTED
  11. LEVAQUIN [Concomitant]
     Dosage: 250 MG, QD
     Route: 048
  12. OMEPRAZOLE [Concomitant]
     Dosage: 40 MG, AS DIRECTED
  13. PRAVASTATIN [Concomitant]
     Dosage: 20 MG, AS DIRECTED

REACTIONS (4)
  - Disease progression [Fatal]
  - Haemorrhage [Fatal]
  - Blood product transfusion dependent [Unknown]
  - Treatment failure [Unknown]
